FAERS Safety Report 13131848 (Version 6)
Quarter: 2018Q2

REPORT INFORMATION
  Report Type: Report from Study
  Country: US (occurrence: US)
  Receive Date: 20170119
  Receipt Date: 20180425
  Transmission Date: 20180711
  Serious: Yes (Death, Hospitalization)
  Sender: FDA-Public Use
  Company Number: US-ACTELION-A-US2017-148361

PATIENT
  Age: 77 Year
  Sex: Male

DRUGS (21)
  1. ACETAMINOPHEN. [Concomitant]
     Active Substance: ACETAMINOPHEN
     Dosage: SUPPOSITORY
  2. METHYLPREDNISOLONE. [Concomitant]
     Active Substance: METHYLPREDNISOLONE
     Dosage: INJECTION
  3. LEVOFLOXACIN. [Concomitant]
     Active Substance: LEVOFLOXACIN
  4. PANTOPRAZOLE [Concomitant]
     Active Substance: PANTOPRAZOLE
  5. OXYGEN. [Concomitant]
     Active Substance: OXYGEN
     Dosage: 4 L/MIN, UNK
     Route: 045
  6. OPSUMIT [Suspect]
     Active Substance: MACITENTAN
     Indication: PULMONARY HYPERTENSION
     Dosage: 10 MG, QD
     Route: 048
     Dates: start: 20160229, end: 20170110
  7. WARFARIN [Concomitant]
     Active Substance: WARFARIN
  8. GABAPENTIN. [Concomitant]
     Active Substance: GABAPENTIN
     Dosage: UNK
     Dates: start: 20160505
  9. ONDANSETRON [Concomitant]
     Active Substance: ONDANSETRON
  10. ATROPINE. [Concomitant]
     Active Substance: ATROPINE
     Dosage: 1 UNK, UNK
     Route: 060
  11. AZTREONAM. [Concomitant]
     Active Substance: AZTREONAM
  12. AMIODARONE [Concomitant]
     Active Substance: AMIODARONE
  13. GLIMEPIRIDE. [Concomitant]
     Active Substance: GLIMEPIRIDE
     Dosage: UNK
     Dates: start: 20160505
  14. MORPHINE [Concomitant]
     Active Substance: MORPHINE
     Route: 042
  15. VELETRI [Suspect]
     Active Substance: EPOPROSTENOL
     Dosage: UNK
     Route: 042
     Dates: start: 20150813
  16. INSULIN GLARGINE [Concomitant]
     Active Substance: INSULIN GLARGINE
     Dosage: UNK
     Dates: start: 201610
  17. ATORVASTATIN [Concomitant]
     Active Substance: ATORVASTATIN
     Dosage: UNK
     Dates: start: 2015
  18. LORAZEPAM. [Concomitant]
     Active Substance: LORAZEPAM
     Dosage: INJECTION
  19. DULCOLAX NOS [Concomitant]
     Active Substance: BISACODYL OR DOCUSATE SODIUM
  20. HEPARIN [Concomitant]
     Active Substance: HEPARIN SODIUM
  21. VELETRI [Suspect]
     Active Substance: EPOPROSTENOL
     Indication: PULMONARY HYPERTENSION
     Dosage: 20 NG/KG, PER MIN
     Route: 042
     Dates: end: 20170110

REACTIONS (10)
  - Acute respiratory failure [Fatal]
  - Atrial tachycardia [Unknown]
  - Cough [Fatal]
  - Pulmonary arterial hypertension [Fatal]
  - Chronic obstructive pulmonary disease [Fatal]
  - Oxygen saturation decreased [Unknown]
  - Dyspnoea [Fatal]
  - Hypertonic bladder [Unknown]
  - Respiratory failure [Fatal]
  - Nail hypertrophy [Unknown]

NARRATIVE: CASE EVENT DATE: 20160322
